FAERS Safety Report 25256667 (Version 1)
Quarter: 2025Q2

REPORT INFORMATION
  Report Type: Spontaneous
  Country: US (occurrence: US)
  Receive Date: 20250430
  Receipt Date: 20250430
  Transmission Date: 20250716
  Serious: Yes (Hospitalization)
  Sender: MYLAN
  Company Number: US-MYLANLABS-2025M1036123

PATIENT
  Age: 46 Year
  Sex: Female

DRUGS (28)
  1. CYCLOSPORINE [Suspect]
     Active Substance: CYCLOSPORINE
     Indication: Haemolytic anaemia
     Dosage: 200 MILLIGRAM, BID
  2. CYCLOSPORINE [Suspect]
     Active Substance: CYCLOSPORINE
     Dosage: 200 MILLIGRAM, BID
     Route: 065
  3. CYCLOSPORINE [Suspect]
     Active Substance: CYCLOSPORINE
     Dosage: 200 MILLIGRAM, BID
     Route: 065
  4. CYCLOSPORINE [Suspect]
     Active Substance: CYCLOSPORINE
     Dosage: 200 MILLIGRAM, BID
  5. METHYLPREDNISOLONE [Suspect]
     Active Substance: METHYLPREDNISOLONE
     Indication: Haemolytic anaemia
  6. METHYLPREDNISOLONE [Suspect]
     Active Substance: METHYLPREDNISOLONE
     Route: 065
  7. METHYLPREDNISOLONE [Suspect]
     Active Substance: METHYLPREDNISOLONE
     Route: 065
  8. METHYLPREDNISOLONE [Suspect]
     Active Substance: METHYLPREDNISOLONE
  9. IMMUNE GLOBULIN NOS [Suspect]
     Active Substance: IMMUNE GLOBULIN NOS
     Indication: Haemolytic anaemia
  10. IMMUNE GLOBULIN NOS [Suspect]
     Active Substance: IMMUNE GLOBULIN NOS
     Route: 042
  11. IMMUNE GLOBULIN NOS [Suspect]
     Active Substance: IMMUNE GLOBULIN NOS
     Route: 042
  12. IMMUNE GLOBULIN NOS [Suspect]
     Active Substance: IMMUNE GLOBULIN NOS
  13. RITUXIMAB [Suspect]
     Active Substance: RITUXIMAB
     Indication: Haemolytic anaemia
     Dosage: 375 MILLIGRAM/SQ. METER, QW
  14. RITUXIMAB [Suspect]
     Active Substance: RITUXIMAB
     Dosage: 375 MILLIGRAM/SQ. METER, QW
     Route: 042
  15. RITUXIMAB [Suspect]
     Active Substance: RITUXIMAB
     Dosage: 375 MILLIGRAM/SQ. METER, QW
     Route: 042
  16. RITUXIMAB [Suspect]
     Active Substance: RITUXIMAB
     Dosage: 375 MILLIGRAM/SQ. METER, QW
  17. CLADRIBINE [Concomitant]
     Active Substance: CLADRIBINE
     Indication: Chronic myelomonocytic leukaemia
  18. CLADRIBINE [Concomitant]
     Active Substance: CLADRIBINE
     Route: 065
  19. CLADRIBINE [Concomitant]
     Active Substance: CLADRIBINE
     Route: 065
  20. CLADRIBINE [Concomitant]
     Active Substance: CLADRIBINE
  21. CYTARABINE [Concomitant]
     Active Substance: CYTARABINE
     Indication: Chronic myelomonocytic leukaemia
  22. CYTARABINE [Concomitant]
     Active Substance: CYTARABINE
     Route: 058
  23. CYTARABINE [Concomitant]
     Active Substance: CYTARABINE
     Route: 058
  24. CYTARABINE [Concomitant]
     Active Substance: CYTARABINE
  25. GILTERITINIB [Concomitant]
     Active Substance: GILTERITINIB
     Indication: Chronic myelomonocytic leukaemia
     Dosage: 80 MILLIGRAM, QD, RECEIVED FOR 28 DAYS
  26. GILTERITINIB [Concomitant]
     Active Substance: GILTERITINIB
     Dosage: 80 MILLIGRAM, QD, RECEIVED FOR 28 DAYS
     Route: 065
  27. GILTERITINIB [Concomitant]
     Active Substance: GILTERITINIB
     Dosage: 80 MILLIGRAM, QD, RECEIVED FOR 28 DAYS
     Route: 065
  28. GILTERITINIB [Concomitant]
     Active Substance: GILTERITINIB
     Dosage: 80 MILLIGRAM, QD, RECEIVED FOR 28 DAYS

REACTIONS (2)
  - Drug ineffective [Unknown]
  - Off label use [Unknown]
